FAERS Safety Report 4521172-4 (Version None)
Quarter: 2004Q4

REPORT INFORMATION
  Report Type: 
  Country: None (occurrence: None)
  Receive Date: 20041203
  Receipt Date: 20041122
  Transmission Date: 20050328
  Serious: Yes (Hospitalization)
  Sender: FDA-Public Use
  Company Number: 2004CG02335

PATIENT
  Age: 58 Year
  Sex: Female

DRUGS (7)
  1. ARIMIDEX [Suspect]
     Indication: BREAST CANCER
     Dosage: 1 MG QD; PO
     Route: 048
     Dates: start: 20040802, end: 20040922
  2. FLUOROURACIL [Concomitant]
  3. ENDOXAN [Concomitant]
  4. EPIRUBICIN [Concomitant]
  5. FLORADIX KRAUTERBLUT [Concomitant]
  6. ACETAMINOPHEN [Concomitant]
  7. .. [Concomitant]

REACTIONS (1)
  - THROMBOCYTOPENIA [None]
